FAERS Safety Report 6479512-5 (Version None)
Quarter: 2009Q4

REPORT INFORMATION
  Report Type: 
  Country: None (occurrence: None)
  Receive Date: 20091207
  Receipt Date: 20091207
  Transmission Date: 20100525
  Serious: Yes (Other)
  Sender: FDA-Public Use
  Company Number: None

PATIENT
  Age: 34 Year
  Sex: Male

DRUGS (1)
  1. TOTAL PARENTAL NUTRITION [Suspect]
     Dosage: 75ML PER HOUR CONTINUOUS IV DRIP
     Route: 041
     Dates: start: 20090826, end: 20090826

REACTIONS (3)
  - DYSPNOEA [None]
  - FLUSHING [None]
  - OXYGEN SATURATION DECREASED [None]
